FAERS Safety Report 17702950 (Version 2)
Quarter: 2020Q2

REPORT INFORMATION
  Report Type: Report from Study
  Country: CO (occurrence: CO)
  Receive Date: 20200424
  Receipt Date: 20200429
  Transmission Date: 20200714
  Serious: Yes (Hospitalization)
  Sender: FDA-Public Use
  Company Number: CO-ASTRAZENECA-2020SE53446

PATIENT
  Age: 23542 Day
  Sex: Male

DRUGS (7)
  1. DIOVAN [Concomitant]
     Active Substance: VALSARTAN
     Route: 065
  2. ASPIRIN. [Concomitant]
     Active Substance: ASPIRIN
     Route: 065
  3. NEVILET [Concomitant]
     Dosage: 5.0MG UNKNOWN
     Route: 065
  4. VALSARTAN INDAPAMIDE [Concomitant]
     Route: 065
  5. FENOFIBRIC ACID ROSUVASTATIN [Concomitant]
     Route: 065
  6. BRILINTA [Suspect]
     Active Substance: TICAGRELOR
     Indication: ACUTE CORONARY SYNDROME
     Route: 048
     Dates: start: 20200313
  7. DESLANZOPRAZOLE [Concomitant]
     Dosage: 30 MG BEFORE MEALS
     Route: 065

REACTIONS (1)
  - Arthritis [Recovered/Resolved]

NARRATIVE: CASE EVENT DATE: 20200413
